FAERS Safety Report 24275611 (Version 4)
Quarter: 2024Q3

REPORT INFORMATION
  Report Type: Spontaneous
  Country: US (occurrence: US)
  Receive Date: 20240903
  Receipt Date: 20240911
  Transmission Date: 20241017
  Serious: No
  Sender: AMGEN
  Company Number: US-AMGEN-USASP2024171151

PATIENT
  Age: 62 Year
  Sex: Female

DRUGS (1)
  1. AIMOVIG [Suspect]
     Active Substance: ERENUMAB-AOOE
     Indication: Product used for unknown indication
     Dosage: 70 MILLIGRAM, QMO
     Route: 065
     Dates: start: 2024

REACTIONS (5)
  - Headache [Unknown]
  - Hypersensitivity [Unknown]
  - Device difficult to use [Unknown]
  - Drug dose omission by device [Unknown]
  - Therapy interrupted [Unknown]

NARRATIVE: CASE EVENT DATE: 20240101
